FAERS Safety Report 23605370 (Version 1)
Quarter: 2024Q1

REPORT INFORMATION
  Report Type: Spontaneous
  Country: US (occurrence: US)
  Receive Date: 20240307
  Receipt Date: 20240307
  Transmission Date: 20240410
  Serious: No
  Sender: FDA-Public Use
  Company Number: US-TEVA-VS-3143145

PATIENT

DRUGS (1)
  1. LETROZOLE [Suspect]
     Active Substance: LETROZOLE
     Route: 048

REACTIONS (1)
  - Product use issue [Unknown]
